FAERS Safety Report 4473049-0 (Version None)
Quarter: 2004Q4

REPORT INFORMATION
  Report Type: 
  Country: None (occurrence: None)
  Receive Date: 20041013
  Receipt Date: 20040819
  Transmission Date: 20050328
  Serious: Yes (Hospitalization)
  Sender: FDA-Public Use
  Company Number: NL-GLAXOSMITHKLINE-B0343107A

PATIENT
  Age: 37 Year
  Sex: Male

DRUGS (2)
  1. BUPROPION HYDROCHLORIDE [Suspect]
     Dosage: 150MG UNKNOWN
     Dates: start: 20040816, end: 20040817
  2. PREDNISOLONE [Concomitant]
     Dosage: 30MG PER DAY
     Dates: start: 20040801

REACTIONS (5)
  - ABASIA [None]
  - ARTHRALGIA [None]
  - ERYTHEMA MULTIFORME [None]
  - PAIN [None]
  - TYPE IV HYPERSENSITIVITY REACTION [None]
